FAERS Safety Report 25916979 (Version 1)
Quarter: 2025Q4

REPORT INFORMATION
  Report Type: Spontaneous
  Country: IN (occurrence: IN)
  Receive Date: 20251014
  Receipt Date: 20251014
  Transmission Date: 20260118
  Serious: Yes (Hospitalization, Other)
  Sender: ACCORD
  Company Number: IN-MLMSERVICE-20240403-PI009564-00221-1

PATIENT
  Age: 56 Year
  Sex: Male

DRUGS (2)
  1. FLUOXETINE [Interacting]
     Active Substance: FLUOXETINE HYDROCHLORIDE
     Indication: Depression
  2. METOPROLOL [Interacting]
     Active Substance: METOPROLOL
     Indication: Hypertension

REACTIONS (3)
  - Bundle branch block right [Recovering/Resolving]
  - Atrioventricular block complete [Recovered/Resolved]
  - Drug interaction [Unknown]
